FAERS Safety Report 23860420 (Version 4)
Quarter: 2025Q3

REPORT INFORMATION
  Report Type: Report from Study
  Country: US (occurrence: US)
  Receive Date: 20240516
  Receipt Date: 20250810
  Transmission Date: 20251020
  Serious: No
  Sender: ALEXION PHARMACEUTICALS
  Company Number: US-AstraZeneca-CH-00623315A

PATIENT
  Sex: Male

DRUGS (3)
  1. ULTOMIRIS [Suspect]
     Active Substance: RAVULIZUMAB-CWVZ
     Indication: Myasthenia gravis
  2. IMURAN [Suspect]
     Active Substance: AZATHIOPRINE
     Indication: Product used for unknown indication
     Route: 065
  3. IMURAN [Suspect]
     Active Substance: AZATHIOPRINE
     Route: 065

REACTIONS (5)
  - White blood cell count abnormal [Unknown]
  - Blood magnesium abnormal [Unknown]
  - Blood potassium abnormal [Unknown]
  - Red blood cell count abnormal [Unknown]
  - General physical health deterioration [Unknown]
